FAERS Safety Report 4786049-8 (Version None)
Quarter: 2005Q3

REPORT INFORMATION
  Report Type: 
  Country: None (occurrence: None)
  Receive Date: 20050929
  Receipt Date: 20050929
  Transmission Date: 20060218
  Serious: Yes (Other)
  Sender: FDA-Public Use
  Company Number: None

PATIENT
  Age: 81 Year
  Sex: Male
  Weight: 25.4 kg

DRUGS (15)
  1. IMIPENEM-CILASTATIN NA 250MG I [Suspect]
     Dosage: 250MG, Q12H, INTRAVEN
     Route: 042
     Dates: start: 20050225, end: 20050303
  2. ACETAMINOPHEN/CODEINE [Concomitant]
  3. DOCUSATE CALCIUM (SURFAK) [Concomitant]
  4. NITROGLYCERIN [Concomitant]
  5. DIFLUCAN [Concomitant]
  6. LABETALOL [Concomitant]
  7. SERTRALINE HCL [Concomitant]
  8. SENNA [Concomitant]
  9. FERROUS SULFATE [Concomitant]
  10. FINASTERIDE [Concomitant]
  11. FELODIPINE [Concomitant]
  12. LOVENOX [Concomitant]
  13. CALCIUM CARBONATE [Concomitant]
  14. ASPIRIN [Concomitant]
  15. ETYTHROPOIETIN [Concomitant]

REACTIONS (2)
  - CONVULSION [None]
  - HYPERTENSION [None]
